FAERS Safety Report 4869267-X (Version None)
Quarter: 2005Q4

REPORT INFORMATION
  Report Type: 
  Country: None (occurrence: None)
  Receive Date: 20051230
  Receipt Date: 20051221
  Transmission Date: 20060501
  Serious: Yes (Life-Threatening, Hospitalization)
  Sender: FDA-Public Use
  Company Number: FR-JNJFOC-20051103436

PATIENT
  Sex: Female
  Weight: 50 kg

DRUGS (5)
  1. REMINYL [Suspect]
     Route: 048
  2. REMINYL [Suspect]
     Route: 048
  3. REMINYL [Suspect]
     Route: 048
  4. NITRODERM [Concomitant]
     Route: 065
  5. MELLARIL [Concomitant]
     Route: 065

REACTIONS (2)
  - COLONIC PSEUDO-OBSTRUCTION [None]
  - NAUSEA [None]
